FAERS Safety Report 4510873-X (Version None)
Quarter: 2004Q4

REPORT INFORMATION
  Report Type: 
  Country: None (occurrence: None)
  Receive Date: 20041124
  Receipt Date: 20041115
  Transmission Date: 20050328
  Serious: Yes (Hospitalization, Disabling)
  Sender: FDA-Public Use
  Company Number: US-MERCK-0411USA02817

PATIENT
  Sex: Female

DRUGS (1)
  1. VIOXX [Suspect]
     Indication: ARTHRITIS
     Route: 048
     Dates: start: 19990101, end: 20020701

REACTIONS (4)
  - CARDIAC FAILURE CONGESTIVE [None]
  - COLITIS [None]
  - RED BLOOD CELL COUNT DECREASED [None]
  - RENAL FAILURE [None]
